FAERS Safety Report 4891069-9 (Version None)
Quarter: 2006Q1

REPORT INFORMATION
  Report Type: 
  Country: None (occurrence: None)
  Receive Date: 20060125
  Receipt Date: 20060105
  Transmission Date: 20060701
  Serious: Yes (Congenital Anomaly, Other)
  Sender: FDA-Public Use
  Company Number: US-GILEAD-2006-0009079

PATIENT
  Sex: Male

DRUGS (4)
  1. TRUVADA [Suspect]
     Indication: HIV INFECTION
     Dosage: 300/200 MG
     Route: 064
     Dates: start: 20041210, end: 20050712
  2. RITONAVIR [Concomitant]
     Indication: HIV INFECTION
     Route: 064
     Dates: start: 20041210, end: 20050515
  3. KALETRA [Concomitant]
     Indication: HIV INFECTION
     Dosage: 1000 MG/DAY
     Route: 064
     Dates: start: 20050515, end: 20050712
  4. ATAZANAVIR [Concomitant]
     Indication: HIV INFECTION
     Route: 064
     Dates: start: 20041210, end: 20050515

REACTIONS (7)
  - CLEFT PALATE [None]
  - DIGEORGE'S SYNDROME [None]
  - DRUG EXPOSURE DURING PREGNANCY [None]
  - FALLOT'S TETRALOGY [None]
  - KIDNEY SMALL [None]
  - NEPHROCALCINOSIS [None]
  - PULMONARY ARTERY ATRESIA [None]
